FAERS Safety Report 12475097 (Version 1)
Quarter: 2016Q2

REPORT INFORMATION
  Report Type: Spontaneous
  Country: US (occurrence: US)
  Receive Date: 20160617
  Receipt Date: 20160617
  Transmission Date: 20160815
  Serious: Yes (Other)
  Sender: FDA-Public Use
  Company Number: US-ASPEN PHARMA TRADING LIMITED US-AG-2016-006733

PATIENT
  Age: 58 Year
  Sex: Male

DRUGS (2)
  1. BUSULFAN. [Suspect]
     Active Substance: BUSULFAN
     Indication: BONE MARROW CONDITIONING REGIMEN
     Route: 065
  2. FLUDARABINE [Concomitant]
     Active Substance: FLUDARABINE PHOSPHATE
     Indication: BONE MARROW CONDITIONING REGIMEN
     Route: 065

REACTIONS (2)
  - Graft versus host disease in gastrointestinal tract [Recovering/Resolving]
  - Graft versus host disease in skin [Unknown]
